FAERS Safety Report 13564229 (Version 3)
Quarter: 2017Q2

REPORT INFORMATION
  Report Type: Spontaneous
  Country: KR (occurrence: KR)
  Receive Date: 20170519
  Receipt Date: 20170609
  Transmission Date: 20170830
  Serious: Yes (Hospitalization)
  Sender: FDA-Public Use
  Company Number: KR-FRESENIUS KABI-FK201704245

PATIENT
  Age: 43 Year
  Sex: Female

DRUGS (2)
  1. MOBINULE [Concomitant]
     Indication: PRODUCTIVE COUGH
     Dates: start: 20170510, end: 20170510
  2. PROPOFOL 1% MCT FRESENIUS [Suspect]
     Active Substance: PROPOFOL
     Indication: PRODUCT USED FOR UNKNOWN INDICATION
     Route: 065
     Dates: start: 20170510, end: 20170510

REACTIONS (5)
  - Pyrexia [Recovered/Resolved]
  - Bipolar disorder [Recovered/Resolved]
  - Acute kidney injury [Recovered/Resolved]
  - Shock [Recovered/Resolved]
  - Muscular weakness [Unknown]

NARRATIVE: CASE EVENT DATE: 20170515
